FAERS Safety Report 9170878 (Version 1)
Quarter: 2013Q1

REPORT INFORMATION
  Report Type: Spontaneous
  Country: BR (occurrence: None)
  Receive Date: 20130311
  Receipt Date: 20130311
  Transmission Date: 20140127
  Serious: Yes (Other)
  Sender: FDA-Public Use
  Company Number: MPS1-1000945

PATIENT
  Age: 40 Year
  Sex: Male
  Weight: 61 kg

DRUGS (4)
  1. ALDURAZYME (LARONIDASE) CONCENTRATE FOR SOLUTION FOR INFUSION [Suspect]
     Indication: MUCOPOLYSACCHARIDOSIS
     Dosage: 1.2 MG/KG, EVERY 2
     Route: 042
     Dates: start: 201005
  2. ENALAPRIL [Concomitant]
  3. HYDROCHLOROTHIAZIDE (HYDROCHLOROTHIAZIDE) [Concomitant]
  4. ACETYLSALICYLIC ACID (ACETYLSALICYLIC ACID) [Concomitant]

REACTIONS (6)
  - Mitral valve stenosis [None]
  - Carpal tunnel syndrome [None]
  - Off label use [None]
  - Inappropriate schedule of drug administration [None]
  - Rheumatoid arthritis [None]
  - Treatment noncompliance [None]
